FAERS Safety Report 7417604-4 (Version None)
Quarter: 2011Q2

REPORT INFORMATION
  Report Type: 
  Country: None (occurrence: None)
  Receive Date: 20110415
  Receipt Date: 20110404
  Transmission Date: 20111010
  Serious: Yes (Other)
  Sender: FDA-Public Use
  Company Number: PHHY2011GR28087

PATIENT
  Sex: Female

DRUGS (2)
  1. ACLASTA [Suspect]
     Dosage: 5 MG, UNK
     Route: 042
     Dates: start: 20100526
  2. THYROID PREPARATIONS [Concomitant]
     Indication: THYROID DISORDER

REACTIONS (3)
  - MEMORY IMPAIRMENT [None]
  - DISORIENTATION [None]
  - WEIGHT DECREASED [None]
